FAERS Safety Report 8801039 (Version 4)
Quarter: 2013Q2

REPORT INFORMATION
  Report Type: Report from Study
  Country: BR (occurrence: BR)
  Receive Date: 20120920
  Receipt Date: 20130621
  Transmission Date: 20140414
  Serious: Yes (Hospitalization, Other)
  Sender: FDA-Public Use
  Company Number: BR-ROCHE-1128627

PATIENT
  Age: 49 Year
  Sex: Female
  Weight: 72 kg

DRUGS (10)
  1. XOLAIR [Suspect]
     Indication: ASTHMA
     Dosage: 2 APPLICATIONS, 1 APPLICATION EACH ARM
     Route: 065
     Dates: start: 2009
  2. XOLAIR [Suspect]
     Route: 065
     Dates: start: 20120917
  3. XOLAIR [Suspect]
     Route: 065
     Dates: start: 20130408
  4. XOLAIR [Suspect]
     Route: 065
  5. SINGULAIR [Concomitant]
     Dosage: 10 MG
     Route: 002
  6. ALENDRONATE SODIUM [Concomitant]
     Route: 065
     Dates: start: 2009
  7. METFORMIN [Concomitant]
     Route: 065
     Dates: start: 2009
  8. GLIFAGE [Concomitant]
  9. HIGROTON [Concomitant]
  10. CORTISONE [Concomitant]

REACTIONS (20)
  - Asthmatic crisis [Unknown]
  - Fall [Unknown]
  - Upper limb fracture [Recovering/Resolving]
  - Lung disorder [Recovering/Resolving]
  - Somnolence [Recovering/Resolving]
  - Nervousness [Recovering/Resolving]
  - Malaise [Recovering/Resolving]
  - Memory impairment [Recovering/Resolving]
  - Syncope [Recovering/Resolving]
  - Swelling [Recovering/Resolving]
  - Pain [Recovering/Resolving]
  - Fatigue [Recovering/Resolving]
  - Dyspnoea [Recovering/Resolving]
  - Bone decalcification [Recovering/Resolving]
  - Wrist fracture [Recovering/Resolving]
  - Gait disturbance [Recovering/Resolving]
  - Infection [Recovering/Resolving]
  - Pain in extremity [Recovering/Resolving]
  - Diabetes mellitus [Unknown]
  - Weight increased [Unknown]
